FAERS Safety Report 6102932-5 (Version None)
Quarter: 2009Q1

REPORT INFORMATION
  Report Type: 
  Country: None (occurrence: None)
  Receive Date: 20090303
  Receipt Date: 20090303
  Transmission Date: 20090719
  Serious: Yes (Other)
  Sender: FDA-Public Use
  Company Number: None

PATIENT
  Sex: Male
  Weight: 72.44 kg

DRUGS (1)
  1. AMBISOME [Suspect]
     Dates: start: 20080801, end: 20081109

REACTIONS (1)
  - RASH ERYTHEMATOUS [None]
